FAERS Safety Report 17531626 (Version 1)
Quarter: 2020Q1

REPORT INFORMATION
  Report Type: Spontaneous
  Country: US (occurrence: US)
  Receive Date: 20200312
  Receipt Date: 20200312
  Transmission Date: 20200409
  Serious: Yes (Hospitalization, Other)
  Sender: FDA-Public Use
  Company Number: US-GLAXOSMITHKLINE-US2019AMR239837

PATIENT
  Age: 56 Year
  Sex: Male

DRUGS (3)
  1. ENBREL [Suspect]
     Active Substance: ETANERCEPT
     Indication: PSORIASIS
     Dosage: UNK
  2. ACITRETIN. [Suspect]
     Active Substance: ACITRETIN
     Indication: PSORIASIS
     Dosage: UNK
  3. CEFAZOLIN SODIUM. [Suspect]
     Active Substance: CEFAZOLIN SODIUM
     Indication: CIRCUMCISION
     Dosage: UNK

REACTIONS (6)
  - Dermatitis exfoliative [Recovering/Resolving]
  - Thrombosis [Recovering/Resolving]
  - Acute myocardial infarction [Unknown]
  - Ischaemic stroke [Recovering/Resolving]
  - Retinal artery occlusion [Recovering/Resolving]
  - Acute kidney injury [Recovering/Resolving]
